FAERS Safety Report 17884058 (Version 1)
Quarter: 2020Q2

REPORT INFORMATION
  Report Type: Spontaneous
  Country: US (occurrence: US)
  Receive Date: 20200610
  Receipt Date: 20200610
  Transmission Date: 20200714
  Serious: Yes (Other)
  Sender: FDA-Public Use
  Company Number: None

PATIENT
  Age: 61 Year
  Sex: Female
  Weight: 61.69 kg

DRUGS (2)
  1. FOSAMAX [Suspect]
     Active Substance: ALENDRONATE SODIUM
  2. GENERIC BONIVA [Suspect]
     Active Substance: IBANDRONATE SODIUM

REACTIONS (4)
  - Abdominal discomfort [None]
  - Drug intolerance [None]
  - Abdominal pain [None]
  - Diarrhoea [None]
